FAERS Safety Report 15859584 (Version 2)
Quarter: 2019Q1

REPORT INFORMATION
  Report Type: Spontaneous
  Country: CZ (occurrence: CZ)
  Receive Date: 20190123
  Receipt Date: 20190128
  Transmission Date: 20190417
  Serious: Yes (Hospitalization)
  Sender: FDA-Public Use
  Company Number: CZ-BAYER-2019-011523

PATIENT
  Sex: Female

DRUGS (1)
  1. STIVARGA [Suspect]
     Active Substance: REGORAFENIB
     Indication: COLORECTAL CANCER METASTATIC
     Dosage: 160 MG, QD
     Route: 048
     Dates: start: 20170822, end: 201709

REACTIONS (4)
  - Mucosal toxicity [Recovered/Resolved]
  - Pyrexia [Recovered/Resolved]
  - Drug intolerance [None]
  - Skin toxicity [Recovered/Resolved]

NARRATIVE: CASE EVENT DATE: 201709
